FAERS Safety Report 16198067 (Version 1)
Quarter: 2019Q2

REPORT INFORMATION
  Report Type: Spontaneous
  Country: US (occurrence: US)
  Receive Date: 20190312
  Receipt Date: 20190312
  Transmission Date: 20190711
  Serious: No
  Sender: FDA-Public Use
  Company Number: None

PATIENT
  Age: 55 Year
  Sex: Female
  Weight: 46.27 kg

DRUGS (4)
  1. SODIUM CHLORIDE 0.9% SOLUTION, [Suspect]
     Active Substance: SODIUM CHLORIDE
     Indication: SYSTEMIC LUPUS ERYTHEMATOSUS
     Dosage: UUD WITH BENLYSTA INFUSION
     Dates: start: 201805
  2. BENLYSTA [Suspect]
     Active Substance: BELIMUMAB
     Indication: RHEUMATOID ARTHRITIS
     Dosage: INFUSE 463MG VIA INTRAVENOUSLY OVER 1HR EVERY 4 WEEKS AS DIRECTED?
     Route: 042
     Dates: start: 201803
  3. SODIUM CHLORIDE 0.9% SOLUTION, [Suspect]
     Active Substance: SODIUM CHLORIDE
     Indication: RHEUMATOID ARTHRITIS
     Dosage: UUD WITH BENLYSTA INFUSION
     Dates: start: 201805
  4. BENLYSTA [Suspect]
     Active Substance: BELIMUMAB
     Indication: SYSTEMIC LUPUS ERYTHEMATOSUS
     Dosage: INFUSE 463MG VIA INTRAVENOUSLY OVER 1HR EVERY 4 WEEKS AS DIRECTED?
     Route: 042
     Dates: start: 201803

REACTIONS (2)
  - Infection [None]
  - Condition aggravated [None]
